FAERS Safety Report 7402731-8 (Version None)
Quarter: 2011Q1

REPORT INFORMATION
  Report Type: 
  Country: None (occurrence: None)
  Receive Date: 20110329
  Receipt Date: 20110315
  Transmission Date: 20110831
  Serious: Yes (Disabling, Other)
  Sender: FDA-Public Use
  Company Number: US-1185278

PATIENT
  Age: 80 Year
  Sex: Female
  Weight: 75.7507 kg

DRUGS (2)
  1. CYCLOSPORINE [Concomitant]
  2. DIFLUPREDNATE 0.05 % OPHTHALMIC EMULSION [Suspect]
     Indication: PROPHYLAXIS AGAINST TRANSPLANT REJECTION
     Dosage: (1 GTT QID UNTIL 20-DEC-2010 THEN TID, 07-FEB-2011 QID OPHTHALMIC)
     Route: 047
     Dates: start: 20101101, end: 20110301

REACTIONS (2)
  - ULCERATIVE KERATITIS [None]
  - PSEUDOMONAS TEST POSITIVE [None]
